FAERS Safety Report 6511406-9 (Version None)
Quarter: 2009Q4

REPORT INFORMATION
  Report Type: 
  Country: None (occurrence: None)
  Receive Date: 20091222
  Receipt Date: 20090312
  Transmission Date: 20100525
  Serious: No
  Sender: FDA-Public Use
  Company Number: US-ASTRAZENECA-2009UW06464

PATIENT
  Age: 78 Year
  Sex: Female

DRUGS (6)
  1. CRESTOR [Suspect]
     Route: 048
     Dates: start: 20081229
  2. SYNTHROID [Concomitant]
  3. LOTREL [Concomitant]
  4. INDERAL [Concomitant]
  5. FOSAMAX [Concomitant]
  6. DEMADEX [Concomitant]

REACTIONS (1)
  - GINGIVAL DISORDER [None]
